FAERS Safety Report 8191917-3 (Version None)
Quarter: 2012Q1

REPORT INFORMATION
  Report Type: 
  Country: None (occurrence: None)
  Receive Date: 20120307
  Receipt Date: 20120301
  Transmission Date: 20120608
  Serious: Yes (Hospitalization)
  Sender: FDA-Public Use
  Company Number: US-CELGENEUS-163-21880-11120477

PATIENT
  Sex: Female

DRUGS (16)
  1. DEXAMETHASONE [Concomitant]
     Route: 065
  2. MORPHINE [Concomitant]
     Route: 065
  3. LEVOTHYROXINE SODIUM [Concomitant]
     Route: 065
  4. LOSARTAN POTASSIUM [Concomitant]
     Route: 065
  5. DOCUSATE [Concomitant]
     Route: 065
  6. HUMALOG [Concomitant]
     Route: 065
  7. LIPITOR [Concomitant]
     Route: 065
  8. LANTUS [Concomitant]
     Route: 065
  9. REVLIMID [Suspect]
     Indication: MULTIPLE MYELOMA
     Dosage: 25 MILLIGRAM
     Route: 048
     Dates: start: 20111101
  10. ACETAMINOPHEN [Concomitant]
     Route: 065
  11. BUPROPION HCL [Concomitant]
     Route: 065
  12. LOVENOX [Concomitant]
     Route: 065
  13. COUMADIN [Concomitant]
     Route: 065
  14. ASPIRIN [Concomitant]
     Dosage: 81 MILLIGRAM
     Route: 065
     Dates: start: 20111103
  15. NYSTATIN [Concomitant]
     Route: 065
  16. LASIX [Concomitant]
     Route: 065

REACTIONS (2)
  - THROMBOSIS [None]
  - BLOOD GLUCOSE INCREASED [None]
